FAERS Safety Report 11607085 (Version 1)
Quarter: 2015Q3

REPORT INFORMATION
  Report Type: Spontaneous
  Country: US (occurrence: US)
  Receive Date: 20150916
  Receipt Date: 20150916
  Transmission Date: 20151125
  Serious: No
  Sender: FDA-Public Use
  Company Number: US-ELI_LILLY_AND_COMPANY-US201401007385

PATIENT
  Age: 92 Year
  Sex: Female

DRUGS (4)
  1. HUMALOG [Suspect]
     Active Substance: INSULIN LISPRO
     Dosage: 4 U, EACH AFTERNOON
     Route: 065
     Dates: start: 1989
  2. HUMALOG [Suspect]
     Active Substance: INSULIN LISPRO
     Dosage: UNK UNK, PRN IN EVENING
     Route: 065
     Dates: start: 1989
  3. HUMALOG [Suspect]
     Active Substance: INSULIN LISPRO
     Indication: DIABETES MELLITUS
     Dosage: 7 U, EACH MORNING
     Route: 065
     Dates: start: 1989
  4. LANTUS [Concomitant]
     Active Substance: INSULIN GLARGINE
     Dosage: 9 U, UNKNOWN
     Route: 065

REACTIONS (4)
  - Malaise [Unknown]
  - Hypoacusis [Unknown]
  - Incorrect dose administered [Unknown]
  - Medication error [Unknown]

NARRATIVE: CASE EVENT DATE: 20140120
